FAERS Safety Report 16891806 (Version 4)
Quarter: 2020Q1

REPORT INFORMATION
  Report Type: Report from Study
  Country: US (occurrence: US)
  Receive Date: 20191007
  Receipt Date: 20200120
  Transmission Date: 20200409
  Serious: Yes (Hospitalization)
  Sender: FDA-Public Use
  Company Number: US-PFIZER INC-2019422504

PATIENT
  Age: 57 Year
  Sex: Male
  Weight: 107.8 kg

DRUGS (24)
  1. CYTARABINE. [Suspect]
     Active Substance: CYTARABINE
     Indication: ACUTE MYELOID LEUKAEMIA
     Dosage: 260 MG,DAILY BY CONTINUOUS INFUSION
     Route: 041
     Dates: start: 20190830, end: 20190906
  2. DAUNORUBICIN [Suspect]
     Active Substance: DAUNORUBICIN
     Indication: ACUTE MYELOID LEUKAEMIA
     Dosage: 150 MG, DAILY BY CONTINUOUS INFUSION
     Route: 041
     Dates: start: 20190830, end: 20190901
  3. SENOKOT-S [Concomitant]
     Active Substance: DOCUSATE SODIUM\SENNOSIDES
     Indication: CONSTIPATION
     Dosage: 325-650 MG, AS NEEDED (Q4H)
     Route: 048
     Dates: start: 20190829
  4. ZOVIRAX [Concomitant]
     Active Substance: ACYCLOVIR
     Indication: ANTIVIRAL PROPHYLAXIS
     Dosage: 800 MG, 1X/DAY
     Route: 048
     Dates: start: 20190830
  5. MAXIPIME [Concomitant]
     Active Substance: CEFEPIME HYDROCHLORIDE
     Indication: PROPHYLAXIS
     Dosage: 2 G, 3X/DAY (EVERY 8 HOURS)
     Route: 042
     Dates: start: 20190901
  6. ZYLOPRIM [Concomitant]
     Active Substance: ALLOPURINOL
     Indication: PROPHYLAXIS
     Dosage: 300 MG, 2X/DAY
     Route: 048
     Dates: start: 20190830, end: 20190830
  7. ALUMINIUM HYDROXIDE;DIPHENHYDRAMINE HYDROCHLORIDE;LIDOCAINE HYDROCHLOR [Concomitant]
     Indication: STOMATITIS
     Dosage: 10-15ML, AS NEEDED (SPECIAL MOUTHWAS)
     Route: 048
     Dates: start: 20190917, end: 20190927
  8. DELTASONE [Concomitant]
     Active Substance: PREDNISONE
     Indication: POLYMYALGIA RHEUMATICA
     Dosage: 50 MG, SINGLE
     Route: 048
     Dates: start: 20190829
  9. LASIX [Concomitant]
     Active Substance: FUROSEMIDE
     Indication: WEIGHT INCREASED
     Dosage: 20 MG, SINGLE (ONCE)
     Route: 042
     Dates: start: 20190902, end: 20190902
  10. IPRATROPIUM/ALBUTEROL [Concomitant]
     Active Substance: ALBUTEROL\IPRATROPIUM
     Indication: CHRONIC OBSTRUCTIVE PULMONARY DISEASE
     Dosage: 270 ML, AS NEEDED (SOLUTION NEBULIZER)
     Route: 055
     Dates: start: 20190923
  11. CELEBREX [Concomitant]
     Active Substance: CELECOXIB
     Indication: PAIN IN EXTREMITY
     Dosage: 200 MG, 2X/DAY
     Route: 048
     Dates: start: 20190829
  12. PROVENTIL [Concomitant]
     Active Substance: ALBUTEROL
     Indication: COUGH
     Dosage: 90 UG, AS NEEDED PER ACTUATION (Q4H)
     Route: 055
     Dates: start: 20190829
  13. ATIVAN [Concomitant]
     Active Substance: LORAZEPAM
     Indication: ANXIETY
     Dosage: 1 MG, SINGLE (ONCE)
     Route: 048
     Dates: start: 20190830, end: 20190830
  14. LEVOTHYROXINE. [Concomitant]
     Active Substance: LEVOTHYROXINE
     Indication: HYPOTHYROIDISM
     Dosage: 175 UG, 1X/DAY QD AM
     Route: 048
     Dates: start: 20190830
  15. MYCOSTATIN [Concomitant]
     Active Substance: NYSTATIN
     Indication: ANTIFUNGAL PROPHYLAXIS
     Dosage: 5 ML, 4X/DAY (SUSPENSION)
     Route: 048
     Dates: start: 20190829, end: 20190830
  16. IPRATROPIUM/ALBUTEROL [Concomitant]
     Active Substance: ALBUTEROL\IPRATROPIUM
     Indication: DYSPNOEA
  17. OXYCODONE [Concomitant]
     Active Substance: OXYCODONE
     Indication: PAIN IN EXTREMITY
     Dosage: 5-10 MG, AS NEEDED Q4H (IMMEDIATE RELEASE)
     Route: 048
     Dates: start: 20190829
  18. ZYLOPRIM [Concomitant]
     Active Substance: ALLOPURINOL
     Dosage: 300-600 MG, 1X/DAY
     Route: 048
     Dates: start: 20190830, end: 20190905
  19. KYTRIL [Concomitant]
     Active Substance: GRANISETRON HYDROCHLORIDE
     Indication: CHEMOTHERAPY
     Dosage: 1-2MG, 1X/DAY
     Route: 048
     Dates: start: 20190830, end: 20190901
  20. SUBLIMAZE [Concomitant]
     Active Substance: FENTANYL CITRATE
     Indication: STOMATITIS
     Dosage: 12.5 UG, ONCE
     Route: 042
     Dates: start: 20190909, end: 20190909
  21. VENTOLIN [Concomitant]
     Active Substance: ALBUTEROL SULFATE
     Indication: COUGH
     Dosage: 90 UG, AS NEEDED PER ACTUATION (Q4H)
     Route: 055
     Dates: start: 20190829
  22. SODIUM CHLORIDE. [Concomitant]
     Active Substance: SODIUM CHLORIDE
     Indication: ACUTE MYELOID LEUKAEMIA
     Dosage: 75 ML/HR CONTINUOUS
     Route: 042
     Dates: start: 20190830
  23. PLACEBO [Suspect]
     Active Substance: UNSPECIFIED INGREDIENT
     Indication: ACUTE MYELOID LEUKAEMIA
     Dosage: UNK, ONCE DAILY CONTINUOUS
     Route: 048
     Dates: start: 20190830, end: 20190922
  24. MIRALAX [Concomitant]
     Active Substance: POLYETHYLENE GLYCOL 3350
     Indication: CONSTIPATION
     Dosage: 17 G, AS NEEDED (QD)
     Route: 048
     Dates: start: 20190831

REACTIONS (1)
  - Stomatitis [Recovered/Resolved]

NARRATIVE: CASE EVENT DATE: 20190927
